FAERS Safety Report 21208732 (Version 1)
Quarter: 2022Q3

REPORT INFORMATION
  Report Type: Spontaneous
  Country: AU (occurrence: AU)
  Receive Date: 20220812
  Receipt Date: 20220812
  Transmission Date: 20221027
  Serious: Yes (Other)
  Sender: FDA-Public Use
  Company Number: AU-SCALL-2022-AU-000199

PATIENT
  Age: 67 Year
  Sex: Male

DRUGS (18)
  1. DUTASTERIDE\TAMSULOSIN HYDROCHLORIDE [Suspect]
     Active Substance: DUTASTERIDE\TAMSULOSIN HYDROCHLORIDE
     Indication: Product used for unknown indication
     Dosage: UNK 500/400
     Route: 065
  2. DOCUSATE SODIUM\SENNOSIDES A AND B [Suspect]
     Active Substance: DOCUSATE SODIUM\SENNOSIDES A AND B
     Route: 065
  3. CEFTRIAXONE [Suspect]
     Active Substance: CEFTRIAXONE
     Route: 065
  4. MAGNESIUM ASPARTATE [Suspect]
     Active Substance: MAGNESIUM ASPARTATE
     Route: 065
  5. METOPROLOL [Suspect]
     Active Substance: METOPROLOL
     Route: 065
  6. NALOXONE HYDROCHLORIDE\OXYCODONE HYDROCHLORIDE [Suspect]
     Active Substance: NALOXONE HYDROCHLORIDE\OXYCODONE HYDROCHLORIDE
     Route: 065
  7. PIPERACILLIN SODIUM\TAZOBACTAM SODIUM [Suspect]
     Active Substance: PIPERACILLIN SODIUM\TAZOBACTAM SODIUM
     Route: 065
  8. ENOXAPARIN [Suspect]
     Active Substance: ENOXAPARIN
     Route: 065
  9. AZITHROMYCIN [Suspect]
     Active Substance: AZITHROMYCIN
     Route: 065
  10. OXYCODONE HYDROCHLORIDE [Suspect]
     Active Substance: OXYCODONE HYDROCHLORIDE
     Route: 065
  11. AUGMENTIN [Suspect]
     Active Substance: AMOXICILLIN\CLAVULANATE POTASSIUM
     Route: 065
  12. FUROSEMIDE [Suspect]
     Active Substance: FUROSEMIDE
     Route: 065
  13. VITAMIN K [Concomitant]
     Active Substance: PHYTONADIONE
     Route: 065
  14. ROXITHROMYCIN [Suspect]
     Active Substance: ROXITHROMYCIN
     Route: 065
  15. SPIRONOLACTONE [Suspect]
     Active Substance: SPIRONOLACTONE
     Route: 065
  16. HYDROXYUREA [Suspect]
     Active Substance: HYDROXYUREA
     Route: 065
  17. ALLOPURINOL [Suspect]
     Active Substance: ALLOPURINOL
     Route: 065
  18. ALLOPURINOL [Suspect]
     Active Substance: ALLOPURINOL
     Route: 065

REACTIONS (28)
  - Chronic kidney disease [Unknown]
  - Splenic infarction [Unknown]
  - Renal impairment [Unknown]
  - Decubitus ulcer [Unknown]
  - Anisocytosis [Unknown]
  - Tachypnoea [Unknown]
  - Duodenitis [Unknown]
  - Dysplasia [Unknown]
  - Dyspnoea exertional [Unknown]
  - Early satiety [Unknown]
  - Hypervolaemia [Unknown]
  - Arrhythmia [Unknown]
  - Macrocytosis [Unknown]
  - Mastocytosis [Unknown]
  - Monocytosis [Unknown]
  - Pleural effusion [Unknown]
  - Pleurisy [Unknown]
  - Splenomegaly [Unknown]
  - Abdominal pain upper [Unknown]
  - Anaemia [Unknown]
  - Diarrhoea [Unknown]
  - Atrial fibrillation [Unknown]
  - Chronic myelomonocytic leukaemia [Unknown]
  - Deep vein thrombosis [Unknown]
  - Leukostasis syndrome [Unknown]
  - Obstruction gastric [Unknown]
  - Pulmonary oedema [Unknown]
  - Respiratory failure [Unknown]
